FAERS Safety Report 6186755-7 (Version None)
Quarter: 2009Q2

REPORT INFORMATION
  Report Type: 
  Country: None (occurrence: None)
  Receive Date: 20090508
  Receipt Date: 20090508
  Transmission Date: 20091009
  Serious: No
  Sender: FDA-Public Use
  Company Number: None

PATIENT
  Sex: Female
  Weight: 71.09 kg

DRUGS (4)
  1. CISPLATIN [Suspect]
     Dosage: 58 MG
  2. DOXORUBICIN HYDROCHLORIDE [Suspect]
     Dosage: 87 MG
  3. TAXOL [Suspect]
     Dosage: 240 MG
  4. NEULASTA [Suspect]
     Dosage: 6 MG

REACTIONS (8)
  - ASCITES [None]
  - GENERALISED OEDEMA [None]
  - HYPOTENSION [None]
  - INTESTINAL OBSTRUCTION [None]
  - PLEURAL EFFUSION [None]
  - PNEUMONIA ASPIRATION [None]
  - PULMONARY OEDEMA [None]
  - RESPIRATORY ARREST [None]
